FAERS Safety Report 8139674-0 (Version None)
Quarter: 2012Q1

REPORT INFORMATION
  Report Type: 
  Country: None (occurrence: None)
  Receive Date: 20120215
  Receipt Date: 20120209
  Transmission Date: 20120608
  Serious: Yes (Other)
  Sender: FDA-Public Use
  Company Number: PHHY2011CA111638

PATIENT
  Sex: Female

DRUGS (4)
  1. VITAMIN D [Concomitant]
     Dosage: 400 IU, UNK
  2. CALCIUM [Concomitant]
     Dosage: UNK UKN, UNK
  3. ZOLEDRONOC ACID [Suspect]
     Indication: OSTEOPOROSIS
     Dosage: UNK UKN, UNK
     Route: 042
     Dates: start: 20110209
  4. AMITRIPTYLINE HCL [Concomitant]
     Dosage: 10 MG, UNK

REACTIONS (1)
  - MULTIPLE MYELOMA [None]
